FAERS Safety Report 7198114-9 (Version None)
Quarter: 2010Q4

REPORT INFORMATION
  Report Type: 
  Country: None (occurrence: None)
  Receive Date: 20101227
  Receipt Date: 20101217
  Transmission Date: 20110411
  Serious: Yes (Death)
  Sender: FDA-Public Use
  Company Number: JP-GENZYME-THYM-1002198

PATIENT
  Sex: Male
  Weight: 75 kg

DRUGS (4)
  1. THYMOGLOBULIN [Suspect]
     Indication: APLASTIC ANAEMIA
     Dosage: 275 MG, QD
     Route: 042
     Dates: start: 20090831, end: 20090904
  2. METHYLPREDNISOLONE SODIUM SUCCINATE [Concomitant]
     Indication: APLASTIC ANAEMIA
     Dosage: UNK
     Dates: start: 20090831, end: 20090904
  3. FILGRASTIM [Concomitant]
     Indication: APLASTIC ANAEMIA
     Dosage: UNK
     Dates: start: 20090831, end: 20090911
  4. FAMOTIDINE [Concomitant]
     Indication: PROPHYLAXIS AGAINST GASTROINTESTINAL ULCER
     Dosage: UNK
     Dates: start: 20090831, end: 20091024

REACTIONS (2)
  - CONDITION AGGRAVATED [None]
  - SEPTIC SHOCK [None]
